FAERS Safety Report 4305835-1 (Version None)
Quarter: 2004Q1

REPORT INFORMATION
  Report Type: 
  Country: None (occurrence: None)
  Receive Date: 20040225
  Receipt Date: 20040213
  Transmission Date: 20041129
  Serious: Yes (Death)
  Sender: FDA-Public Use
  Company Number: USA-2003-0007706

PATIENT
  Age: 21 Year
  Sex: Female
  Weight: 53.1 kg

DRUGS (4)
  1. OXYCODONE HCL [Suspect]
  2. COCAINE (COCAINE) [Suspect]
  3. INSULIN [Concomitant]
  4. BIRTH CONTROL PILLS [Concomitant]

REACTIONS (4)
  - CORONARY ARTERY ATHEROSCLEROSIS [None]
  - DRUG SCREEN POSITIVE [None]
  - POLYTRAUMATISM [None]
  - ROAD TRAFFIC ACCIDENT [None]
